FAERS Safety Report 6402075-7 (Version None)
Quarter: 2009Q4

REPORT INFORMATION
  Report Type: 
  Country: None (occurrence: None)
  Receive Date: 20091015
  Receipt Date: 20091002
  Transmission Date: 20100525
  Serious: Yes (Other)
  Sender: FDA-Public Use
  Company Number: AU-PFIZER INC-2009263488

PATIENT
  Age: 68 Year

DRUGS (3)
  1. LIPITOR [Suspect]
     Dosage: 20 MG, 1X/DAY
     Dates: end: 20090325
  2. ATACAND [Concomitant]
  3. EFFEXOR [Concomitant]

REACTIONS (3)
  - DRUG ERUPTION [None]
  - VULVITIS [None]
  - VULVOVAGINITIS [None]
